FAERS Safety Report 9737133 (Version 1)
Quarter: 2013Q4

REPORT INFORMATION
  Report Type: Spontaneous
  Country: RO (occurrence: RO)
  Receive Date: 20131206
  Receipt Date: 20131206
  Transmission Date: 20140711
  Serious: Yes (Hospitalization)
  Sender: FDA-Public Use
  Company Number: RO-BRISTOL-MYERS SQUIBB COMPANY-19892389

PATIENT
  Age: 47 Year
  Sex: Female

DRUGS (3)
  1. ABILIFY TABS [Suspect]
     Indication: SCHIZOPHRENIA
     Route: 048
     Dates: start: 20080917
  2. LAMOTRIGINE [Concomitant]
     Indication: SCHIZOPHRENIA
     Dosage: TAB
     Route: 048
     Dates: start: 20130322
  3. SERTRALINE [Concomitant]
     Indication: SCHIZOPHRENIA
     Dosage: TAB
     Route: 048
     Dates: start: 20110904

REACTIONS (2)
  - Paraesthesia [Unknown]
  - Muscular weakness [Unknown]
